FAERS Safety Report 8553463-4 (Version None)
Quarter: 2012Q3

REPORT INFORMATION
  Report Type: 
  Country: None (occurrence: None)
  Receive Date: 20120731
  Receipt Date: 20070215
  Transmission Date: 20120928
  Serious: Yes (Hospitalization)
  Sender: FDA-Public Use
  Company Number: US-ROCHE-1094223

PATIENT
  Sex: Female

DRUGS (2)
  1. XOLAIR [Suspect]
     Indication: ASTHMA
     Dosage: DOSE: 375/175/100 MG
     Dates: start: 20031012, end: 20060111
  2. XOLAIR [Suspect]
     Dates: end: 20070114

REACTIONS (1)
  - ASTHMA [None]
